FAERS Safety Report 4390693-X (Version None)
Quarter: 2004Q2

REPORT INFORMATION
  Report Type: 
  Country: None (occurrence: None)
  Receive Date: 20040630
  Receipt Date: 20040617
  Transmission Date: 20050107
  Serious: Yes (Death, Other)
  Sender: FDA-Public Use
  Company Number: 163-20785-04040580

PATIENT
  Age: 74 Year
  Sex: Female
  Weight: 48.671 kg

DRUGS (2)
  1. THALOMID [Suspect]
     Indication: MULTIPLE MYELOMA
     Dosage: 200 MG , DAILY , ORAL
     Route: 048
  2. DECADRON [Concomitant]

REACTIONS (11)
  - CONVULSION [None]
  - DERMATITIS [None]
  - IMPAIRED HEALING [None]
  - MALIGNANT NEOPLASM PROGRESSION [None]
  - MULTIPLE MYELOMA [None]
  - PANCYTOPENIA [None]
  - PYREXIA [None]
  - RASH [None]
  - RENAL FAILURE [None]
  - STOMATITIS [None]
  - WEIGHT DECREASED [None]
